FAERS Safety Report 9961762 (Version 1)
Quarter: 2014Q1

REPORT INFORMATION
  Report Type: Report from Study
  Country: US (occurrence: US)
  Receive Date: 20140305
  Receipt Date: 20140305
  Transmission Date: 20141002
  Serious: No
  Sender: FDA-Public Use
  Company Number: US-ABBVIE-13P-163-1111222-00

PATIENT
  Sex: Male
  Weight: 72.64 kg

DRUGS (4)
  1. HUMIRA [Suspect]
     Indication: CROHN^S DISEASE
     Route: 058
     Dates: start: 201301
  2. AZOTHIARPRINE [Concomitant]
     Indication: CROHN^S DISEASE
  3. ASACOL [Concomitant]
     Indication: CROHN^S DISEASE
  4. VYVANCE [Concomitant]
     Indication: ATTENTION DEFICIT/HYPERACTIVITY DISORDER

REACTIONS (10)
  - Chills [Recovered/Resolved]
  - Gingival recession [Recovered/Resolved]
  - Influenza like illness [Recovered/Resolved]
  - Pyrexia [Recovered/Resolved]
  - Pain [Recovered/Resolved]
  - Gingival recession [Not Recovered/Not Resolved]
  - Gingival bleeding [Not Recovered/Not Resolved]
  - Breath odour [Not Recovered/Not Resolved]
  - Unevaluable event [Not Recovered/Not Resolved]
  - Gingivitis [Not Recovered/Not Resolved]
